FAERS Safety Report 21008272 (Version 2)
Quarter: 2025Q3

REPORT INFORMATION
  Report Type: Spontaneous
  Country: US (occurrence: US)
  Receive Date: 20220627
  Receipt Date: 20250916
  Transmission Date: 20251020
  Serious: No
  Sender: AMGEN
  Company Number: US-AMGEN-USASP2022108474

PATIENT
  Age: 62 Year
  Sex: Male

DRUGS (33)
  1. OTEZLA [Suspect]
     Active Substance: APREMILAST
     Indication: Psoriasis
     Dosage: 30 MILLIGRAM, BID
     Route: 048
     Dates: start: 20220302
  2. OTEZLA [Suspect]
     Active Substance: APREMILAST
     Dosage: 30 MILLIGRAM, BID
     Route: 048
     Dates: start: 20220302
  3. ACETAMINOPHEN [Concomitant]
     Active Substance: ACETAMINOPHEN
  4. AMLODIPINE [Concomitant]
     Active Substance: AMLODIPINE BESYLATE
  5. ASPIRIN [Concomitant]
     Active Substance: ASPIRIN
  6. CARVEDILOL [Concomitant]
     Active Substance: CARVEDILOL
  7. COLCHICINE [Concomitant]
     Active Substance: COLCHICINE
  8. Cyclopentol [Concomitant]
  9. ENALAPRIL [Concomitant]
     Active Substance: ENALAPRIL
  10. FEBUXOSTAT [Concomitant]
     Active Substance: FEBUXOSTAT
  11. FLONASE [Concomitant]
     Active Substance: FLUTICASONE PROPIONATE
  12. A-HYDROCORT [Concomitant]
     Active Substance: HYDROCORTISONE SODIUM SUCCINATE
  13. KETOCONAZOLE [Concomitant]
     Active Substance: KETOCONAZOLE
  14. LEVOCETIRIZINE DIHYDROCHLORIDE [Concomitant]
     Active Substance: LEVOCETIRIZINE DIHYDROCHLORIDE
  15. LEVOTHYROXINE [Concomitant]
     Active Substance: LEVOTHYROXINE
  16. LOVASTATIN [Concomitant]
     Active Substance: LOVASTATIN
  17. METFORMIN [Concomitant]
     Active Substance: METFORMIN HYDROCHLORIDE
  18. METHOCARBAMOL [Concomitant]
     Active Substance: METHOCARBAMOL
  19. SPIRONOLACTONE [Concomitant]
     Active Substance: SPIRONOLACTONE
  20. TADALAFIL [Concomitant]
     Active Substance: TADALAFIL
  21. TRIAMCINOLONE ACETONIDE [Concomitant]
     Active Substance: TRIAMCINOLONE ACETONIDE
  22. ATORVASTATIN [Concomitant]
     Active Substance: ATORVASTATIN
  23. COLACE [Concomitant]
     Active Substance: DOCUSATE SODIUM
  24. ELIQUIS [Concomitant]
     Active Substance: APIXABAN
  25. Enalpril [Concomitant]
  26. GLYBURIDE [Concomitant]
     Active Substance: GLYBURIDE
  27. HYDRALAZINE [Concomitant]
     Active Substance: HYDRALAZINE HYDROCHLORIDE
  28. MIRALAX [Concomitant]
     Active Substance: POLYETHYLENE GLYCOL 3350
  29. MOTRIN [Concomitant]
     Active Substance: IBUPROFEN
  30. ONDANSETRON [Concomitant]
     Active Substance: ONDANSETRON
  31. OXYCODONE [Concomitant]
     Active Substance: OXYCODONE
  32. OZEMPIC [Concomitant]
     Active Substance: SEMAGLUTIDE
  33. TYLENOL [Concomitant]
     Active Substance: ACETAMINOPHEN

REACTIONS (1)
  - Psoriasis [Not Recovered/Not Resolved]

NARRATIVE: CASE EVENT DATE: 20220623
